FAERS Safety Report 7758920-6 (Version None)
Quarter: 2011Q3

REPORT INFORMATION
  Report Type: 
  Country: None (occurrence: None)
  Receive Date: 20110919
  Receipt Date: 20110907
  Transmission Date: 20111222
  Serious: Yes (Other)
  Sender: FDA-Public Use
  Company Number: GB-US-EMD SERONO, INC.-7009770

PATIENT
  Sex: Female

DRUGS (8)
  1. REBIF [Suspect]
     Indication: RELAPSING-REMITTING MULTIPLE SCLEROSIS
     Dates: start: 20100625
  2. INSULIN [Concomitant]
     Indication: DIABETES MELLITUS
  3. FERROUS SULFATE TAB [Concomitant]
     Indication: ANAEMIA
  4. METACHLORPROMIDE [Concomitant]
     Indication: MALAISE
  5. REBIF [Suspect]
  6. REBIF [Suspect]
     Dates: start: 20100810
  7. ACETAMINOPHEN AND CODEINE PHOSPHATE [Concomitant]
  8. LEVOTHYROXINE SODIUM [Concomitant]
     Indication: HYPOTHYROIDISM

REACTIONS (8)
  - URINARY TRACT INFECTION [None]
  - INFLUENZA LIKE ILLNESS [None]
  - ORTHOPEDIC PROCEDURE [None]
  - DEFAECATION URGENCY [None]
  - HAEMOGLOBIN DECREASED [None]
  - WHITE BLOOD CELL COUNT DECREASED [None]
  - DIARRHOEA [None]
  - INJECTION SITE ERYTHEMA [None]
